FAERS Safety Report 4572096-8 (Version None)
Quarter: 2005Q1

REPORT INFORMATION
  Report Type: 
  Country: None (occurrence: None)
  Receive Date: 20050202
  Receipt Date: 20050117
  Transmission Date: 20050727
  Serious: Yes (Hospitalization, Other)
  Sender: FDA-Public Use
  Company Number: US_001152718

PATIENT
  Age: 58 Year
  Sex: Male
  Weight: 100 kg

DRUGS (16)
  1. HUMALOG [Suspect]
     Indication: DIABETES MELLITUS
     Dosage: 9 U DAY
  2. HUMALOG [Suspect]
     Indication: DIABETES MELLITUS
     Dates: start: 20000901
  3. HUMULIN N [Suspect]
     Indication: DIABETES MELLITUS
     Dosage: 45 U DAY
  4. HUMULIN 70/30 [Suspect]
  5. PROZAC [Suspect]
     Indication: DEPRESSION
     Dates: start: 19970101
  6. GLUCOPHAGE [Concomitant]
  7. ZYRTEC [Concomitant]
  8. ACTOS [Concomitant]
  9. DIOVAN HCT [Concomitant]
  10. CELEBREX [Concomitant]
  11. ATENOLOL [Concomitant]
  12. LIPITOR [Concomitant]
  13. NEURONTIN (GABAPENTIN PFIZER) [Concomitant]
  14. METFORMIN HCL [Concomitant]
  15. SYNTHROID [Concomitant]
  16. ASPIRIN [Concomitant]

REACTIONS (11)
  - ARTHRALGIA [None]
  - BLOOD PRESSURE DECREASED [None]
  - CARDIAC DISORDER [None]
  - CYST [None]
  - DEPRESSION [None]
  - EXOSTOSIS [None]
  - HYPOAESTHESIA [None]
  - LOSS OF CONSCIOUSNESS [None]
  - MALAISE [None]
  - NEOPLASM [None]
  - PAIN IN EXTREMITY [None]
